FAERS Safety Report 5624238-0 (Version None)
Quarter: 2008Q1

REPORT INFORMATION
  Report Type: 
  Country: None (occurrence: None)
  Receive Date: 20080213
  Receipt Date: 20080206
  Transmission Date: 20080703
  Serious: Yes (Hospitalization)
  Sender: FDA-Public Use
  Company Number: PHHO2007AT19129

PATIENT
  Age: 24 Year
  Sex: Male

DRUGS (1)
  1. MYFORTIC [Suspect]
     Indication: RENAL TRANSPLANT
     Dosage: 1440MG DAILY
     Route: 048
     Dates: start: 20070810

REACTIONS (3)
  - BLOOD CREATININE INCREASED [None]
  - CYST DRAINAGE [None]
  - LYMPHOCELE [None]
